FAERS Safety Report 9516471 (Version 1)
Quarter: 2013Q1

REPORT INFORMATION
  Report Type: Spontaneous
  Country: US (occurrence: None)
  Receive Date: 20130305
  Receipt Date: 20130305
  Transmission Date: 20140127
  Serious: Yes (Other)
  Sender: FDA-Public Use
  Company Number: 163-21880-12113454

PATIENT
  Age: 84 Year
  Sex: Female
  Weight: 51.71 kg

DRUGS (10)
  1. REVLIMID (LENALIDOMIDE) (CAPSULES) [Suspect]
     Indication: PLASMA CELL MYELOMA
     Dosage: 15 MG, 1 IN 1 D, PO
     Route: 048
     Dates: start: 20120503, end: 20121125
  2. ACYCLOVIR (ACICLOVIR) (ACICLOVIR) [Concomitant]
  3. DEXAMETHASONE (DEXAMETHASONE) [Concomitant]
  4. GLIPIZIDE (GLIPIZIDE) [Concomitant]
  5. KLOR-CON M20 (POTASSIUM CHLORIDE) [Concomitant]
  6. LOVENOX (HEPARIN-FRACTION, SODIUM SALT) [Concomitant]
  7. NEUPOGEN (FILGRASTIM) [Concomitant]
  8. OXYCODONE HCL (OXYCODONE HYDROCHLORIDE) [Concomitant]
  9. VELCADE [Concomitant]
  10. ZOFRAN (ONDANSETRON HYDROCHLORIDE) [Concomitant]

REACTIONS (2)
  - Plasmacytoma [None]
  - Otitis externa [None]
